FAERS Safety Report 6137736-0 (Version None)
Quarter: 2009Q1

REPORT INFORMATION
  Report Type: 
  Country: None (occurrence: None)
  Receive Date: 20090326
  Receipt Date: 20090320
  Transmission Date: 20090719
  Serious: Yes (Death)
  Sender: FDA-Public Use
  Company Number: 2009-193333-NL

PATIENT
  Age: 44 Year
  Sex: Male

DRUGS (1)
  1. DANAPAROID SODIUM [Suspect]
     Indication: THROMBOSIS PROPHYLAXIS
     Dosage: 750 IU TW
     Dates: start: 20080317, end: 20090317

REACTIONS (2)
  - PNEUMONIA [None]
  - SEPTIC SHOCK [None]
